FAERS Safety Report 19315419 (Version 3)
Quarter: 2021Q3

REPORT INFORMATION
  Report Type: Report from Study
  Country: JP (occurrence: JP)
  Receive Date: 20210527
  Receipt Date: 20210712
  Transmission Date: 20211014
  Serious: Yes (Other)
  Sender: FDA-Public Use
  Company Number: NVSC2021JP106914

PATIENT
  Age: 68 Year
  Sex: Female

DRUGS (21)
  1. LYSINE ARGININE [Suspect]
     Active Substance: ARGININE\LYSINE
     Dosage: 1000 ML
     Route: 042
     Dates: start: 20191122, end: 20191122
  2. LANSOPRAZOLE. [Concomitant]
     Active Substance: LANSOPRAZOLE
     Indication: PROPHYLAXIS AGAINST GASTROINTESTINAL ULCER
     Dosage: 15 MG, 1 TABLET DAILY
     Route: 065
  3. BONVIVA [Concomitant]
     Active Substance: IBANDRONATE SODIUM
     Indication: PRODUCT USED FOR UNKNOWN INDICATION
     Dosage: 100 MG, QD
     Route: 048
  4. EDIROL [Concomitant]
     Active Substance: ELDECALCITOL
     Indication: PRODUCT USED FOR UNKNOWN INDICATION
     Dosage: 1 UG, QD
     Route: 048
  5. IOPAMIRON [Concomitant]
     Active Substance: IOPAMIDOL
     Indication: PRODUCT USED FOR UNKNOWN INDICATION
     Dosage: 85 ML, QD
     Route: 042
     Dates: start: 20191024, end: 20191024
  6. ALOXI [Concomitant]
     Active Substance: PALONOSETRON HYDROCHLORIDE
     Dosage: 0.75 MG, QD
     Route: 042
     Dates: start: 20200117, end: 20200117
  7. DOMPERIDONE [Concomitant]
     Active Substance: DOMPERIDONE
     Indication: PRODUCT USED FOR UNKNOWN INDICATION
     Dosage: 10 MG/ AS NECESSARY
     Route: 048
     Dates: start: 20190928, end: 20191124
  8. LUTETIUM (177LU) OXODOTREOTIDE [Suspect]
     Active Substance: LUTETIUM OXODOTREOTIDE LU-177
     Indication: PANCREATIC NEUROENDOCRINE TUMOUR
     Dosage: 7.4 GBQ, QD
     Route: 042
     Dates: start: 20190802, end: 20190802
  9. LYSINE ARGININE [Suspect]
     Active Substance: ARGININE\LYSINE
     Dosage: 1000 ML
     Route: 042
     Dates: start: 20200117, end: 20200117
  10. LYSINE ARGININE [Suspect]
     Active Substance: ARGININE\LYSINE
     Dosage: 1000 ML
     Route: 042
     Dates: start: 20190927, end: 20190927
  11. ALOXI [Concomitant]
     Active Substance: PALONOSETRON HYDROCHLORIDE
     Dosage: 0.75 MG, QD
     Route: 042
     Dates: start: 20190927, end: 20190927
  12. LUTETIUM (177LU) OXODOTREOTIDE [Suspect]
     Active Substance: LUTETIUM OXODOTREOTIDE LU-177
     Dosage: 7.4 GBQ, QD
     Route: 042
     Dates: start: 20200117, end: 20200117
  13. LIVALO [Concomitant]
     Active Substance: PITAVASTATIN CALCIUM
     Indication: PRODUCT USED FOR UNKNOWN INDICATION
     Dosage: 2 MG, QD
     Route: 048
  14. LUTETIUM (177LU) OXODOTREOTIDE [Suspect]
     Active Substance: LUTETIUM OXODOTREOTIDE LU-177
     Dosage: 7.4 GBQ, QD
     Route: 042
     Dates: start: 20190927, end: 20190927
  15. CALCIUM L?ASPARTATE [Concomitant]
     Indication: PRODUCT USED FOR UNKNOWN INDICATION
     Dosage: 400 MG, QD
     Route: 048
     Dates: start: 20200110
  16. MITIGLINIDE CALCIUM [Concomitant]
     Active Substance: MITIGLINIDE CALCIUM ANHYDROUS
     Indication: PRODUCT USED FOR UNKNOWN INDICATION
     Dosage: 15 MG, QD
     Route: 048
     Dates: start: 20190620
  17. IOPAMIRON [Concomitant]
     Active Substance: IOPAMIDOL
     Dosage: 86 ML, PER DAY
     Route: 042
     Dates: start: 20200116, end: 20200116
  18. LUTETIUM (177LU) OXODOTREOTIDE [Suspect]
     Active Substance: LUTETIUM OXODOTREOTIDE LU-177
     Dosage: 7.4 GBQ, QD
     Route: 042
     Dates: start: 20191122, end: 20191122
  19. LYSINE ARGININE [Suspect]
     Active Substance: ARGININE\LYSINE
     Indication: PANCREATIC NEUROENDOCRINE TUMOUR
     Dosage: 1000 ML
     Route: 042
     Dates: start: 20190802, end: 20190802
  20. ALOXI [Concomitant]
     Active Substance: PALONOSETRON HYDROCHLORIDE
     Indication: PROPHYLAXIS OF NAUSEA AND VOMITING
     Dosage: 0.75 MG, QD
     Route: 042
     Dates: start: 20190802, end: 20190802
  21. ALOXI [Concomitant]
     Active Substance: PALONOSETRON HYDROCHLORIDE
     Dosage: 0.75 MG, QD
     Route: 042
     Dates: start: 20191122, end: 20191122

REACTIONS (2)
  - Deep vein thrombosis [Not Recovered/Not Resolved]
  - Pulmonary artery thrombosis [Not Recovered/Not Resolved]

NARRATIVE: CASE EVENT DATE: 20210318
